FAERS Safety Report 5357164-5 (Version None)
Quarter: 2007Q2

REPORT INFORMATION
  Report Type: 
  Country: None (occurrence: None)
  Receive Date: 20070612
  Receipt Date: 20070612
  Transmission Date: 20071010
  Serious: Yes (Death)
  Sender: FDA-Public Use
  Company Number: None

PATIENT
  Age: 52 Year
  Sex: Male

DRUGS (1)
  1. TYLENOL [Suspect]
     Indication: HYPERSENSITIVITY

REACTIONS (2)
  - BLEEDING VARICOSE VEIN [None]
  - HEPATITIS C [None]
